FAERS Safety Report 21646080 (Version 1)
Quarter: 2022Q4

REPORT INFORMATION
  Report Type: Report from Study
  Country: US (occurrence: US)
  Receive Date: 20221126
  Receipt Date: 20221126
  Transmission Date: 20230113
  Serious: No
  Sender: FDA-Public Use
  Company Number: US-ABBVIE-4167448

PATIENT
  Sex: Female

DRUGS (10)
  1. HUMIRA [Suspect]
     Active Substance: ADALIMUMAB
     Indication: Rheumatoid arthritis
     Dosage: FORM STRENGTH: 40 MILLIGRAM
     Route: 058
  2. GLIPIZIDE ER [Concomitant]
     Active Substance: GLIPIZIDE
     Indication: Product used for unknown indication
     Route: 048
  3. ALLOPURINOL TAB 100MG [Concomitant]
     Indication: Product used for unknown indication
     Route: 048
  4. PRAVASTATIN TAB 80MG [Concomitant]
     Indication: Product used for unknown indication
     Route: 048
  5. HYDROXYCHLOROQUINE [Concomitant]
     Active Substance: HYDROXYCHLOROQUINE
     Indication: Product used for unknown indication
     Route: 048
  6. LABETALOL HC TAB 100MG [Concomitant]
     Indication: Product used for unknown indication
     Route: 048
  7. LYRICA [Concomitant]
     Active Substance: PREGABALIN
     Indication: Product used for unknown indication
  8. OZEMPIC [Concomitant]
     Active Substance: SEMAGLUTIDE
     Indication: Product used for unknown indication
     Dosage: 1 M SOP 4MG/3ML
  9. LOSARTAN POT TAB [Concomitant]
     Indication: Product used for unknown indication
     Dosage: 100-25MG
     Route: 048
  10. AMLODIPINE B TAB 5MG [Concomitant]
     Indication: Product used for unknown indication
     Route: 048

REACTIONS (3)
  - Pain in extremity [Recovered/Resolved]
  - Musculoskeletal stiffness [Recovered/Resolved]
  - Joint range of motion decreased [Unknown]
